FAERS Safety Report 17772376 (Version 3)
Quarter: 2020Q2

REPORT INFORMATION
  Report Type: Report from Study
  Country: IN (occurrence: IN)
  Receive Date: 20200512
  Receipt Date: 20200529
  Transmission Date: 20200714
  Serious: Yes (Hospitalization)
  Sender: FDA-Public Use
  Company Number: IN-PFIZER INC-2020177009

PATIENT
  Age: 28 Year
  Sex: Male
  Weight: 86 kg

DRUGS (3)
  1. INOTUZUMAB OZOGAMICIN [Suspect]
     Active Substance: INOTUZUMAB OZOGAMICIN
     Dosage: 0.9MG/M2/CYCLE (ADMINISTERED IN 3 DIVIDED DOSE)
     Route: 042
     Dates: end: 20200416
  2. INOTUZUMAB OZOGAMICIN [Suspect]
     Active Substance: INOTUZUMAB OZOGAMICIN
     Dosage: UNK
     Route: 042
  3. INOTUZUMAB OZOGAMICIN [Suspect]
     Active Substance: INOTUZUMAB OZOGAMICIN
     Indication: B-CELL PROLYMPHOCYTIC LEUKAEMIA
     Dosage: CLYOPHILIZED POWDER, 1.2MG/M2 (REPORTED AS 1.2 MG/SQMTR), CYCLIC (ADMINISTERED IN 3 DIVIDED DOSES)
     Route: 042
     Dates: start: 20200304

REACTIONS (1)
  - Anaemia megaloblastic [Recovered/Resolved]

NARRATIVE: CASE EVENT DATE: 20200430
